FAERS Safety Report 11538533 (Version 1)
Quarter: 2015Q3

REPORT INFORMATION
  Report Type: Spontaneous
  Country: US (occurrence: None)
  Receive Date: 20150921
  Receipt Date: 20150921
  Transmission Date: 20151125
  Serious: Yes (Other)
  Sender: FDA-Public Use
  Company Number: RAP-001100-2015

PATIENT
  Sex: Female
  Weight: 26.6 kg

DRUGS (12)
  1. PROCYSBI DELAYED-RELEASE [Suspect]
     Active Substance: CYSTEAMINE BITARTRATE
     Indication: CYSTINOSIS
     Route: 048
     Dates: start: 2014
  2. LEVOCARNITINE. [Concomitant]
     Active Substance: LEVOCARNITINE
  3. POLYVISOL (MULTIVITAMIN) [Concomitant]
  4. POLYCITRA K (POTASSIUM CITRATE AND CITRIC ACID) [Concomitant]
  5. SODIUM CHLORIDE. [Concomitant]
     Active Substance: SODIUM CHLORIDE
  6. PREVACID [Concomitant]
     Active Substance: LANSOPRAZOLE
  7. POTASSIUM CHLORIDE. [Concomitant]
     Active Substance: POTASSIUM CHLORIDE
  8. PHOSNAK (POTASSIUM PHOSPHATE AND SODIUM PHOSPHATE) [Concomitant]
  9. CALCITRIOL (VITAMIN D3) [Concomitant]
  10. ZOFRAN (ONDANSETRON) [Concomitant]
  11. MANGANATE [Concomitant]
  12. ZYRTEC (CETIRIZINE) [Concomitant]

REACTIONS (4)
  - Device occlusion [None]
  - Retching [None]
  - Vomiting [None]
  - Amino acid metabolism disorder [None]
